FAERS Safety Report 8518969-2 (Version None)
Quarter: 2012Q3

REPORT INFORMATION
  Report Type: 
  Country: None (occurrence: None)
  Receive Date: 20120718
  Receipt Date: 20120711
  Transmission Date: 20120928
  Serious: Yes (Other)
  Sender: FDA-Public Use
  Company Number: GB-GLAXOSMITHKLINE-B0815246A

PATIENT
  Sex: Male

DRUGS (3)
  1. POTIGA [Suspect]
     Indication: PARTIAL SEIZURES
     Dosage: 200MG THREE TIMES PER DAY
     Route: 065
  2. CLONAZEPAM [Concomitant]
  3. VALPROATE SODIUM [Concomitant]

REACTIONS (7)
  - PSYCHOTIC BEHAVIOUR [None]
  - DELUSION [None]
  - AGGRESSION [None]
  - ABNORMAL BEHAVIOUR [None]
  - DYSPHONIA [None]
  - CONFUSIONAL STATE [None]
  - SUICIDAL BEHAVIOUR [None]
